FAERS Safety Report 25983922 (Version 1)
Quarter: 2025Q4

REPORT INFORMATION
  Report Type: Spontaneous
  Country: US (occurrence: None)
  Receive Date: 20251030
  Receipt Date: 20251030
  Transmission Date: 20260118
  Serious: Yes (unspecified)
  Sender: FDA-CTU
  Company Number: None

PATIENT
  Age: 62 Year
  Sex: Female
  Weight: 84.2 kg

DRUGS (2)
  1. UBRELVY [Suspect]
     Active Substance: UBROGEPANT
     Indication: Migraine
     Dosage: 1 TOT- TOTASL AS NEEDED ORAL ?
     Route: 048
  2. UBRELVY [Concomitant]
     Active Substance: UBROGEPANT
     Dates: start: 20250919, end: 20251017

REACTIONS (4)
  - Thinking abnormal [None]
  - Anger [None]
  - Suicidal ideation [None]
  - Abnormal behaviour [None]

NARRATIVE: CASE EVENT DATE: 20251017
